FAERS Safety Report 10722281 (Version 1)
Quarter: 2015Q1

REPORT INFORMATION
  Report Type: Spontaneous
  Country: US (occurrence: US)
  Receive Date: 20150119
  Receipt Date: 20150119
  Transmission Date: 20150721
  Serious: No
  Sender: FDA-Public Use
  Company Number: US-GLAXOSMITHKLINE-US2014GSK047504

PATIENT
  Age: 78 Year
  Sex: Female

DRUGS (7)
  1. TANZEUM [Suspect]
     Active Substance: ALBIGLUTIDE
     Indication: TYPE 1 DIABETES MELLITUS
     Dosage: 30 MG, WE
     Route: 058
     Dates: start: 20141114
  2. HUMULIN R [Concomitant]
     Active Substance: INSULIN HUMAN
  3. GLUCOVANCE [Concomitant]
     Active Substance: GLYBURIDE\METFORMIN HYDROCHLORIDE
  4. ENALAPRIL [Concomitant]
     Active Substance: ENALAPRIL
  5. ALEVE [Concomitant]
     Active Substance: NAPROXEN SODIUM
  6. CLONIDINE. [Concomitant]
     Active Substance: CLONIDINE
  7. HUMULIN N [Concomitant]
     Active Substance: INSULIN HUMAN

REACTIONS (1)
  - Blood glucose increased [Not Recovered/Not Resolved]

NARRATIVE: CASE EVENT DATE: 20141115
